FAERS Safety Report 7417698-6 (Version None)
Quarter: 2011Q2

REPORT INFORMATION
  Report Type: 
  Country: None (occurrence: None)
  Receive Date: 20110415
  Receipt Date: 20110407
  Transmission Date: 20111010
  Serious: Yes (Other)
  Sender: FDA-Public Use
  Company Number: US-ABBOTT-11P-163-0717330-00

PATIENT
  Sex: Female

DRUGS (7)
  1. FOLIC ACID [Concomitant]
     Dates: start: 20101001
  2. HUMIRA [Suspect]
     Route: 058
     Dates: end: 20090728
  3. HUMIRA [Suspect]
     Indication: CROHN'S DISEASE
     Dosage: 160MG (BASELINE)/80MG (WEEK 2)
     Route: 058
     Dates: start: 20080624
  4. ENTOCORT EC [Concomitant]
     Indication: CROHN'S DISEASE
     Dates: start: 20100801, end: 20101211
  5. REMICADE [Concomitant]
     Indication: CROHN'S DISEASE
     Dates: start: 20090812
  6. FISH OIL [Concomitant]
     Indication: CROHN'S DISEASE
     Dates: start: 20081001
  7. FOLIC ACID [Concomitant]
     Indication: ANAEMIA
     Dates: start: 20081001, end: 20101001

REACTIONS (1)
  - ABORTION SPONTANEOUS [None]
